FAERS Safety Report 25034456 (Version 2)
Quarter: 2025Q2

REPORT INFORMATION
  Report Type: Spontaneous
  Country: US (occurrence: US)
  Receive Date: 20250304
  Receipt Date: 20250403
  Transmission Date: 20250716
  Serious: Yes (Hospitalization, Other)
  Sender: NOVO NORDISK
  Company Number: US-NOVOPROD-1378349

PATIENT
  Age: 81 Year
  Sex: Female
  Weight: 79.093 kg

DRUGS (4)
  1. OZEMPIC [Suspect]
     Active Substance: SEMAGLUTIDE
     Indication: Type 2 diabetes mellitus
     Dosage: 0.25 MG, QW
     Route: 058
     Dates: start: 20240102
  2. OZEMPIC [Suspect]
     Active Substance: SEMAGLUTIDE
     Route: 058
     Dates: start: 20240621, end: 202409
  3. OZEMPIC [Suspect]
     Active Substance: SEMAGLUTIDE
     Indication: Type 2 diabetes mellitus
     Dosage: 1 MG, QW
     Route: 058
     Dates: start: 20240807, end: 20241025
  4. ATORVASTATIN CALCIUM [Concomitant]
     Active Substance: ATORVASTATIN CALCIUM
     Indication: Product used for unknown indication
     Dosage: 10 MG, QD
     Route: 048

REACTIONS (13)
  - Fall [Recovering/Resolving]
  - Femur fracture [Not Recovered/Not Resolved]
  - Hyperkalaemia [Unknown]
  - Hypokalaemia [Unknown]
  - Balance disorder [Unknown]
  - Hypotension [Unknown]
  - Hypotension [Unknown]
  - Muscle spasms [Unknown]
  - Nasal congestion [Unknown]
  - Leukocytosis [Unknown]
  - Pain [Unknown]
  - Cough [Unknown]
  - Fatigue [Unknown]

NARRATIVE: CASE EVENT DATE: 20241016
